FAERS Safety Report 18194092 (Version 2)
Quarter: 2020Q3

REPORT INFORMATION
  Report Type: Spontaneous
  Country: US (occurrence: US)
  Receive Date: 20200825
  Receipt Date: 20200831
  Transmission Date: 20201103
  Serious: Yes (Other)
  Sender: FDA-Public Use
  Company Number: US-BIOVITRUM-2020US4456

PATIENT
  Age: 61 Year
  Sex: Female

DRUGS (1)
  1. ANAKINRA [Suspect]
     Active Substance: ANAKINRA
     Indication: COVID-19
     Route: 042

REACTIONS (6)
  - Septic shock [Unknown]
  - Incorrect route of product administration [Recovered/Resolved]
  - Respiratory failure [Unknown]
  - Off label use [Recovered/Resolved]
  - Posterior reversible encephalopathy syndrome [Recovering/Resolving]
  - Acute respiratory distress syndrome [Unknown]
